FAERS Safety Report 21224217 (Version 1)
Quarter: 2022Q3

REPORT INFORMATION
  Report Type: Spontaneous
  Country: US (occurrence: None)
  Receive Date: 20220816
  Receipt Date: 20220816
  Transmission Date: 20221026
  Serious: Yes (Hospitalization)
  Sender: FDA-Public Use
  Company Number: None

PATIENT
  Age: 22 Year
  Sex: Male
  Weight: 72.6 kg

DRUGS (1)
  1. TPOXX [Suspect]
     Active Substance: TECOVIRIMAT
     Indication: Monkeypox
     Dosage: FREQUENCY : TWICE A DAY;?
     Route: 048
     Dates: start: 20220809

REACTIONS (3)
  - Urinary retention [None]
  - Muscular weakness [None]
  - Myelitis transverse [None]

NARRATIVE: CASE EVENT DATE: 20220814
